FAERS Safety Report 14684082 (Version 2)
Quarter: 2018Q2

REPORT INFORMATION
  Report Type: Spontaneous
  Country: US (occurrence: US)
  Receive Date: 20180327
  Receipt Date: 20180514
  Transmission Date: 20180711
  Serious: Yes (Other)
  Sender: FDA-Public Use
  Company Number: US-GLAXOSMITHKLINE-US2018GSK050619

PATIENT
  Age: 15 Month
  Sex: Male

DRUGS (1)
  1. BENLYSTA [Suspect]
     Active Substance: BELIMUMAB
     Route: 064

REACTIONS (16)
  - Insomnia [Not Recovered/Not Resolved]
  - Weight decreased [Unknown]
  - Aggression [Not Recovered/Not Resolved]
  - Anger [Not Recovered/Not Resolved]
  - Food aversion [Not Recovered/Not Resolved]
  - Intentional self-injury [Not Recovered/Not Resolved]
  - Antisocial behaviour [Not Recovered/Not Resolved]
  - Speech disorder developmental [Not Recovered/Not Resolved]
  - Developmental delay [Unknown]
  - Eating disorder [Not Recovered/Not Resolved]
  - Screaming [Unknown]
  - Motor developmental delay [Unknown]
  - Hypophagia [Not Recovered/Not Resolved]
  - Crying [Unknown]
  - Irritability [Not Recovered/Not Resolved]
  - Abnormal behaviour [Not Recovered/Not Resolved]
